FAERS Safety Report 5850408-2 (Version None)
Quarter: 2008Q3

REPORT INFORMATION
  Report Type: 
  Country: None (occurrence: None)
  Receive Date: 20080819
  Receipt Date: 20080807
  Transmission Date: 20090109
  Serious: Yes (Hospitalization)
  Sender: FDA-Public Use
  Company Number: BE-PFIZER INC-2008060166

PATIENT
  Sex: Female

DRUGS (1)
  1. SU-011,248 [Suspect]
     Indication: MALIGNANT MELANOMA
     Route: 048
     Dates: start: 20080707, end: 20080716

REACTIONS (2)
  - ASTHENIA [None]
  - GENERAL PHYSICAL HEALTH DETERIORATION [None]
